FAERS Safety Report 17422315 (Version 1)
Quarter: 2020Q1

REPORT INFORMATION
  Report Type: Report from Study
  Country: US (occurrence: US)
  Receive Date: 20200214
  Receipt Date: 20200214
  Transmission Date: 20200409
  Serious: No
  Sender: FDA-Public Use
  Company Number: NVSC2020US040138

PATIENT
  Sex: Female

DRUGS (1)
  1. ENTRESTO [Suspect]
     Active Substance: SACUBITRIL\VALSARTAN
     Indication: PRODUCT USED FOR UNKNOWN INDICATION
     Dosage: 1 DF, BID 200 MG (97 MG OF SACUBITRIL, 103 MG OF VALSARTAN)
     Route: 048
     Dates: start: 20191227

REACTIONS (2)
  - Vision blurred [Unknown]
  - Insomnia [Unknown]
